FAERS Safety Report 4481538-8 (Version None)
Quarter: 2004Q4

REPORT INFORMATION
  Report Type: 
  Country: None (occurrence: None)
  Receive Date: 20041021
  Receipt Date: 20041010
  Transmission Date: 20050328
  Serious: Yes (Hospitalization)
  Sender: FDA-Public Use
  Company Number: 2004-09-1029

PATIENT
  Age: 37 Year
  Sex: Female

DRUGS (2)
  1. INTERFERON ALFA [Suspect]
     Indication: THROMBOCYTHAEMIA
     Dosage: 3 MIU QD UNKNOWN FOR 3 YEAR(S) FOR PRIMARY THROMBOCYTHAEMIA
  2. INTERFERON ALFA [Suspect]
     Dosage: INTERFERON ALFA 3 MIU QOD UNKNOWN DISCONTINUED FOR PRIMARY THROMBOCYTHAEMIA

REACTIONS (1)
  - BUDD-CHIARI SYNDROME [None]
